FAERS Safety Report 9800776 (Version 2)
Quarter: 2014Q1

REPORT INFORMATION
  Report Type: Spontaneous
  Country: US (occurrence: US)
  Receive Date: 20140107
  Receipt Date: 20140113
  Transmission Date: 20141002
  Serious: No
  Sender: FDA-Public Use
  Company Number: US-PFIZER INC-2014000757

PATIENT
  Age: 34 Year
  Sex: Female
  Weight: 53.52 kg

DRUGS (1)
  1. ELELYSO [Suspect]
     Indication: GAUCHER^S DISEASE
     Dosage: 3200 UNITS EVERY 2 WEEKS
     Route: 042
     Dates: start: 20131230

REACTIONS (2)
  - Headache [Recovered/Resolved]
  - Chills [Unknown]
